FAERS Safety Report 5715552-9 (Version None)
Quarter: 2008Q2

REPORT INFORMATION
  Report Type: 
  Country: None (occurrence: None)
  Receive Date: 20080422
  Receipt Date: 20080410
  Transmission Date: 20081010
  Serious: Yes (Other)
  Sender: FDA-Public Use
  Company Number: 2008BI008766

PATIENT
  Age: 56 Year
  Sex: Male

DRUGS (1)
  1. TYSABRI [Suspect]
     Indication: MULTIPLE SCLEROSIS
     Dosage: IV
     Route: 042
     Dates: start: 20070706, end: 20071130

REACTIONS (4)
  - ASTHENIA [None]
  - CONVULSION [None]
  - ILL-DEFINED DISORDER [None]
  - INCONTINENCE [None]
